FAERS Safety Report 4721777-1 (Version None)
Quarter: 2005Q3

REPORT INFORMATION
  Report Type: 
  Country: None (occurrence: None)
  Receive Date: 20050721
  Receipt Date: 20050411
  Transmission Date: 20060218
  Serious: No
  Sender: FDA-Public Use
  Company Number: US-BRISTOL-MYERS SQUIBB COMPANY-12929089

PATIENT
  Age: 88 Year
  Sex: Male
  Weight: 165 kg

DRUGS (12)
  1. COUMADIN [Suspect]
     Indication: CORONARY ARTERY SURGERY
     Dosage: START NEW BOTTLE 2MG; PRESENT DOSE 2MG DAILY X 5 DAYS + 1MG DAILY X 2 DAYS.
     Route: 048
  2. AMBIEN [Concomitant]
     Dosage: AS NEEDED DAILY
  3. ASPIRIN [Concomitant]
  4. BENADRYL [Concomitant]
  5. DIABETA [Concomitant]
  6. EXELON [Concomitant]
  7. LANOXIN [Concomitant]
  8. NASONEX [Concomitant]
     Route: 045
  9. PRILOSEC [Concomitant]
  10. TENORMIN [Concomitant]
     Dosage: 25 MG, 1/2 TABLET TWICE A DAY
     Route: 048
  11. THYROID TAB [Concomitant]
  12. TUSSIN DM [Concomitant]

REACTIONS (2)
  - DRUG INEFFECTIVE [None]
  - PROTHROMBIN TIME SHORTENED [None]
